FAERS Safety Report 12352308 (Version 1)
Quarter: 2016Q2

REPORT INFORMATION
  Report Type: Spontaneous
  Country: CN (occurrence: CN)
  Receive Date: 20160510
  Receipt Date: 20160510
  Transmission Date: 20160815
  Serious: Yes (Hospitalization, Other)
  Sender: FDA-Public Use
  Company Number: CN-PFIZER INC-2016250392

PATIENT
  Age: 34 Year
  Sex: Male

DRUGS (1)
  1. XALATAN [Suspect]
     Active Substance: LATANOPROST
     Indication: GLAUCOMA
     Dosage: 1 DROP, 1X/DAY
     Route: 047
     Dates: start: 2013

REACTIONS (2)
  - Nephrolithiasis [Recovered/Resolved]
  - Parathyroid gland enlargement [Recovered/Resolved]

NARRATIVE: CASE EVENT DATE: 201506
